FAERS Safety Report 8267019-4 (Version None)
Quarter: 2012Q2

REPORT INFORMATION
  Report Type: 
  Country: None (occurrence: None)
  Receive Date: 20120409
  Receipt Date: 20120329
  Transmission Date: 20120825
  Serious: No
  Sender: FDA-Public Use
  Company Number: US-PFIZER INC-2012081556

PATIENT
  Sex: Female

DRUGS (10)
  1. ZOLOFT [Concomitant]
     Dosage: 100 MG, 1 TABLET EVERY NIGHT AT BEDTIME
     Route: 048
  2. ZITHROMAX [Concomitant]
     Dosage: 250 MG, FOR A TOTAL OF 1
     Route: 048
  3. VITAMIN D [Concomitant]
     Dosage: 1000 UNIT-90 MCG, 4 TABLET DAILY
     Route: 048
  4. CAL-500 [Concomitant]
     Dosage: UNK
     Route: 048
  5. DILANTIN-125 [Suspect]
     Dosage: 400 MG, 1X/DAY
     Route: 048
  6. CRESTOR [Concomitant]
     Dosage: 10 MG, DAILY
     Route: 048
  7. DILANTIN-125 [Suspect]
     Dosage: 30 MG, (1 PO PRN) AS NEEDED
     Route: 048
  8. VERAPAMIL [Concomitant]
     Dosage: 180 MG, 1X/DAY
     Route: 048
     Dates: start: 20120202
  9. DIOVAN HCT [Concomitant]
     Dosage: 160 MG - 12.5 MG, 1 TABLET DAILY
     Route: 048
  10. INTERFERON BETA-1A [Concomitant]
     Dosage: 30 MCG, WEEKLY
     Route: 030

REACTIONS (1)
  - COUGH [None]
